FAERS Safety Report 17230192 (Version 1)
Quarter: 2020Q1

REPORT INFORMATION
  Report Type: Spontaneous
  Country: SE (occurrence: SE)
  Receive Date: 20200103
  Receipt Date: 20200103
  Transmission Date: 20200409
  Serious: Yes (Hospitalization)
  Sender: FDA-Public Use
  Company Number: SE-TEVA-2019-SE-1160521

PATIENT
  Age: 59 Year
  Sex: Female

DRUGS (2)
  1. KALCIUMFOLINAT STADA [Suspect]
     Active Substance: LEUCOVORIN CALCIUM
     Route: 065
  2. FLUOROURACIL. [Suspect]
     Active Substance: FLUOROURACIL
     Route: 065

REACTIONS (2)
  - Cardiac failure [Recovered/Resolved with Sequelae]
  - Chest pain [Recovered/Resolved with Sequelae]

NARRATIVE: CASE EVENT DATE: 201903
